FAERS Safety Report 18981486 (Version 2)
Quarter: 2021Q1

REPORT INFORMATION
  Report Type: Spontaneous
  Country: US (occurrence: US)
  Receive Date: 20210308
  Receipt Date: 20210312
  Transmission Date: 20210420
  Serious: Yes (Other)
  Sender: FDA-Public Use
  Company Number: US-ASTRAZENECA-2021A099275

PATIENT
  Age: 47 Year
  Sex: Male
  Weight: 131.5 kg

DRUGS (2)
  1. OPIDOVO [Concomitant]
  2. BYDUREON BCISE [Suspect]
     Active Substance: EXENATIDE
     Indication: TYPE 2 DIABETES MELLITUS
     Dosage: 2.0MG UNKNOWN
     Route: 058
     Dates: start: 2017

REACTIONS (7)
  - Injection site haemorrhage [Recovered/Resolved]
  - Device leakage [Unknown]
  - Metastases to lung [Unknown]
  - Renal cell carcinoma [Unknown]
  - Thrombosis [Unknown]
  - Incorrect dose administered by device [Unknown]
  - Wrong technique in device usage process [Unknown]

NARRATIVE: CASE EVENT DATE: 2017
